FAERS Safety Report 5572749-9 (Version None)
Quarter: 2007Q4

REPORT INFORMATION
  Report Type: 
  Country: None (occurrence: None)
  Receive Date: 20071222
  Receipt Date: 20071212
  Transmission Date: 20080405
  Serious: Yes (Death, Hospitalization)
  Sender: FDA-Public Use
  Company Number: US-PFIZER INC-2005151964

PATIENT
  Sex: Male
  Weight: 54.8 kg

DRUGS (4)
  1. BENADRYL [Suspect]
     Indication: PREMEDICATION
     Route: 042
     Dates: start: 20051103, end: 20051103
  2. ATIVAN [Suspect]
     Indication: PREMEDICATION
     Route: 042
     Dates: start: 20051103, end: 20051103
  3. CARBOPLATIN [Suspect]
     Indication: NON-SMALL CELL LUNG CANCER
     Dosage: DAILY DOSE:569MG-TEXT:6AUC
     Route: 042
     Dates: start: 20051103, end: 20051103
  4. TAXOL [Suspect]
     Indication: NON-SMALL CELL LUNG CANCER
     Route: 042
     Dates: start: 20051103, end: 20051103

REACTIONS (4)
  - ACUTE RESPIRATORY FAILURE [None]
  - DISEASE PROGRESSION [None]
  - HYPERCAPNIA [None]
  - NON-SMALL CELL LUNG CANCER [None]
